FAERS Safety Report 8337129-1 (Version None)
Quarter: 2012Q2

REPORT INFORMATION
  Report Type: 
  Country: None (occurrence: None)
  Receive Date: 20120504
  Receipt Date: 20110815
  Transmission Date: 20120825
  Serious: No
  Sender: FDA-Public Use
  Company Number: US-TEVA-2011003732

PATIENT
  Sex: Male
  Weight: 59.928 kg

DRUGS (4)
  1. AZATHIOPRINE [Concomitant]
  2. SULFASALAZINE [Concomitant]
  3. NUVIGIL [Suspect]
     Indication: NARCOLEPSY
     Route: 048
     Dates: start: 20110201
  4. DIAZEPAM [Concomitant]

REACTIONS (5)
  - TREMOR [None]
  - NAUSEA [None]
  - BLOOD PRESSURE INCREASED [None]
  - ANXIETY [None]
  - AGITATION [None]
